FAERS Safety Report 7992363-5 (Version None)
Quarter: 2011Q4

REPORT INFORMATION
  Report Type: 
  Country: None (occurrence: None)
  Receive Date: 20111219
  Receipt Date: 20101101
  Transmission Date: 20120403
  Serious: No
  Sender: FDA-Public Use
  Company Number: US-ASTRAZENECA-2010SE51964

PATIENT
  Age: 73 Year
  Sex: Male
  Weight: 86.2 kg

DRUGS (8)
  1. TESTOSTERONE [Concomitant]
     Indication: PITUITARY TUMOUR
  2. FISH OIL [Concomitant]
     Indication: SUPPLEMENTATION THERAPY
  3. CRESTOR [Suspect]
     Indication: HYPERCHLORAEMIA
     Route: 048
     Dates: start: 20090130, end: 20101001
  4. LISINOPRIL [Concomitant]
     Indication: HYPERTENSION
  5. VITAMIN C [Concomitant]
     Indication: SUPPLEMENTATION THERAPY
  6. VITAMIN D [Concomitant]
     Indication: SUPPLEMENTATION THERAPY
  7. LEVOTHYROXINE SODIUM [Concomitant]
     Indication: PITUITARY TUMOUR
  8. PREDNISONE TAB [Concomitant]
     Indication: PITUITARY TUMOUR

REACTIONS (5)
  - HYPERTENSION [None]
  - PAIN IN EXTREMITY [None]
  - MUSCLE SPASMS [None]
  - ABASIA [None]
  - TENDONITIS [None]
